FAERS Safety Report 20966234 (Version 1)
Quarter: 2022Q2

REPORT INFORMATION
  Report Type: Spontaneous
  Country: US (occurrence: None)
  Receive Date: 20220614
  Receipt Date: 20220614
  Transmission Date: 20220721
  Serious: Yes (unspecified)
  Sender: FDA-Public Use
  Company Number: None

PATIENT
  Age: 64 Year
  Sex: Female
  Weight: 87.54 kg

DRUGS (15)
  1. CILGAVIMAB [Suspect]
     Active Substance: CILGAVIMAB
     Dosage: FREQUENCY : ONCE;?
     Route: 030
     Dates: start: 20220602, end: 20220602
  2. multivitamin,tx-iron-minerals Tab [Concomitant]
  3. pantoprazole DR 40 mg tablet [Concomitant]
  4. Potassium Chloride 8 mEq tablet [Concomitant]
  5. ACYCLOVIR [Concomitant]
     Active Substance: ACYCLOVIR
  6. cholecalciferol 1,000 unit Tab tablet [Concomitant]
  7. CITRACAL-D3 MAXIMUM PLUS ORAL [Concomitant]
  8. pregabalin 25 mg capsule [Concomitant]
  9. pregabalin 50 mg capsule [Concomitant]
  10. SALONPAS(M.SALICYLATE-MENTHOL) 10-3 % Ptrnd [Concomitant]
  11. sertraline 50 mg tablet [Concomitant]
  12. tiZANidine 2 mg tablet [Concomitant]
  13. topiramate 50 mg tablet [Concomitant]
  14. TYLENOL EXTRA STRENGTH 500 mg tablet [Concomitant]
  15. VOLTAREN 1 % topical gel [Concomitant]

REACTIONS (2)
  - Dyspnoea [None]
  - Chest discomfort [None]

NARRATIVE: CASE EVENT DATE: 20220603
